FAERS Safety Report 26009687 (Version 1)
Quarter: 2025Q4

REPORT INFORMATION
  Report Type: Report from Study
  Country: US (occurrence: US)
  Receive Date: 20251107
  Receipt Date: 20251107
  Transmission Date: 20260118
  Serious: Yes (Hospitalization, Other)
  Sender: JOHNSON AND JOHNSON
  Company Number: US-JNJFOC-20251146360

PATIENT
  Age: 37 Year
  Sex: Female

DRUGS (1)
  1. SPRAVATO [Suspect]
     Active Substance: ESKETAMINE
     Indication: Depression
     Dosage: ?84 MG, 21 TOTAL DOSES?
     Route: 045
     Dates: start: 20250402, end: 20250813

REACTIONS (2)
  - Hospitalisation [Unknown]
  - Bipolar disorder [Unknown]

NARRATIVE: CASE EVENT DATE: 20250101
